FAERS Safety Report 19148602 (Version 1)
Quarter: 2021Q2

REPORT INFORMATION
  Report Type: Spontaneous
  Country: FR (occurrence: FR)
  Receive Date: 20210416
  Receipt Date: 20210416
  Transmission Date: 20210717
  Serious: Yes (Hospitalization)
  Sender: FDA-Public Use
  Company Number: FR-MYLANLABS-2021M1022093

PATIENT
  Age: 28 Year
  Sex: Male
  Weight: 104 kg

DRUGS (5)
  1. RISPERIDONE MYLAN PHARMA 4 MG, COMPRIM? PELLICUL? S?CABLE [Suspect]
     Active Substance: RISPERIDONE
     Indication: SCHIZOPHRENIA
     Dosage: 4 MILLIGRAM, QD
     Route: 048
     Dates: start: 20201115
  2. ZOPICLONE ARROW [Suspect]
     Active Substance: ZOPICLONE
     Indication: INSOMNIA
     Dosage: 1 DOSAGE FORM
     Route: 048
     Dates: start: 20201120
  3. LOXAPAC                            /00401801/ [Suspect]
     Active Substance: LOXAPINE
     Indication: SCHIZOPHRENIA
     Dosage: 25 GTT DROPS, PRN (ON DEMAND)
     Route: 048
     Dates: start: 20201115
  4. XEPLION [Suspect]
     Active Substance: PALIPERIDONE PALMITATE
     Indication: SCHIZOPHRENIA
     Dosage: 75 MILLIGRAM, TOTAL
     Route: 030
     Dates: start: 20201125, end: 20201125
  5. RISPERIDONE MYLAN PHARMA 2 MG, COMPRIM? PELLICUL? S?CABLE [Suspect]
     Active Substance: RISPERIDONE
     Indication: SCHIZOPHRENIA
     Dosage: 2 MILLIGRAM
     Route: 048
     Dates: start: 20201120

REACTIONS (4)
  - Hypomania [Unknown]
  - Insomnia [Unknown]
  - Disinhibition [Unknown]
  - Agitation [Unknown]

NARRATIVE: CASE EVENT DATE: 20201126
